FAERS Safety Report 20664385 (Version 1)
Quarter: 2022Q2

REPORT INFORMATION
  Report Type: Spontaneous
  Country: DE (occurrence: None)
  Receive Date: 20220401
  Receipt Date: 20220401
  Transmission Date: 20220720
  Serious: Yes (Other)
  Sender: FDA-Public Use
  Company Number: 2022A125551

PATIENT
  Age: 55 Year
  Sex: Male
  Weight: 116 kg

DRUGS (1)
  1. DAPAGLIFLOZIN [Suspect]
     Active Substance: DAPAGLIFLOZIN
     Dosage: 1.0DF UNKNOWN
     Route: 048
     Dates: start: 20210618, end: 20211210

REACTIONS (2)
  - Fournier^s gangrene [Unknown]
  - Necrotising fasciitis [Unknown]

NARRATIVE: CASE EVENT DATE: 20211210
